FAERS Safety Report 4527047-9 (Version None)
Quarter: 2004Q4

REPORT INFORMATION
  Report Type: 
  Country: None (occurrence: None)
  Receive Date: 20041129
  Receipt Date: 20040412
  Transmission Date: 20050328
  Serious: Yes (Hospitalization, Other)
  Sender: FDA-Public Use
  Company Number: USA040464792

PATIENT
  Age: 55 Year
  Sex: Female

DRUGS (3)
  1. ZYPREXA [Suspect]
     Indication: SCHIZOAFFECTIVE DISORDER
     Dosage: 20 MG
     Dates: start: 20030101, end: 20040301
  2. ANTI-DIABETIC [Concomitant]
  3. ZOLOFT [Concomitant]

REACTIONS (2)
  - HYPERGLYCAEMIA [None]
  - PSYCHOTIC DISORDER [None]
